FAERS Safety Report 25769546 (Version 1)
Quarter: 2025Q3

REPORT INFORMATION
  Report Type: Spontaneous
  Country: EU (occurrence: EU)
  Receive Date: 20250906
  Receipt Date: 20250906
  Transmission Date: 20251021
  Serious: Yes (Hospitalization)
  Sender: MACLEODS
  Company Number: EU-MACLEODS PHARMA-MAC2016002439

PATIENT

DRUGS (3)
  1. PREGABALIN [Suspect]
     Active Substance: PREGABALIN
     Indication: Generalised anxiety disorder
     Route: 065
     Dates: start: 201303
  2. TRAMADOL [Suspect]
     Active Substance: TRAMADOL
     Indication: Product used for unknown indication
     Route: 065
     Dates: start: 201303
  3. DIAZEPAM [Suspect]
     Active Substance: DIAZEPAM
     Indication: Product used for unknown indication
     Route: 065
     Dates: start: 201304

REACTIONS (2)
  - Toxicity to various agents [Unknown]
  - Intentional overdose [Unknown]

NARRATIVE: CASE EVENT DATE: 20130101
